FAERS Safety Report 6887825-8 (Version None)
Quarter: 2010Q3

REPORT INFORMATION
  Report Type: 
  Country: None (occurrence: None)
  Receive Date: 20100730
  Receipt Date: 20100727
  Transmission Date: 20110219
  Serious: Yes (Death)
  Sender: FDA-Public Use
  Company Number: JP-SANOFI-AVENTIS-2010SA043971

PATIENT
  Sex: Male

DRUGS (3)
  1. TAXOTERE [Suspect]
     Indication: PROSTATE CANCER RECURRENT
     Route: 041
  2. DEXAMETHASONE [Concomitant]
     Indication: PROSTATE CANCER RECURRENT
  3. ESTRAMUSTINE [Concomitant]
     Indication: PROSTATE CANCER RECURRENT

REACTIONS (1)
  - INTERSTITIAL LUNG DISEASE [None]
